FAERS Safety Report 6653537-9 (Version None)
Quarter: 2010Q1

REPORT INFORMATION
  Report Type: 
  Country: None (occurrence: None)
  Receive Date: 20100326
  Receipt Date: 20100325
  Transmission Date: 20100710
  Serious: Yes (Other)
  Sender: FDA-Public Use
  Company Number: PT-ROXANE LABORATORIES, INC.-2010-RO-00327RO

PATIENT
  Age: 62 Year
  Sex: Female

DRUGS (7)
  1. LORAZEPAM [Suspect]
     Indication: INITIAL INSOMNIA
     Dosage: 1 MG
  2. RAMIPRIL [Suspect]
     Indication: HYPERTENSION
  3. DIAZEPAM [Suspect]
     Indication: INITIAL INSOMNIA
     Dosage: 5 MG
  4. CYCLOPHOSPHAMIDE [Suspect]
     Indication: BREAST CANCER
  5. FLUOROURACIL [Suspect]
     Indication: BREAST CANCER
  6. EPIRUBICIN [Suspect]
     Indication: BREAST CANCER
  7. DOCETAXEL [Suspect]
     Indication: BREAST CANCER

REACTIONS (3)
  - BREAST CANCER [None]
  - DISTURBANCE IN SEXUAL AROUSAL [None]
  - INITIAL INSOMNIA [None]
